FAERS Safety Report 23782739 (Version 2)
Quarter: 2025Q1

REPORT INFORMATION
  Report Type: Spontaneous
  Country: US (occurrence: US)
  Receive Date: 20240425
  Receipt Date: 20250101
  Transmission Date: 20250408
  Serious: No
  Sender: AMGEN
  Company Number: US-AMGEN-USASP2024082487

PATIENT
  Age: 64 Year
  Sex: Male

DRUGS (19)
  1. OTEZLA [Suspect]
     Active Substance: APREMILAST
     Indication: Psoriasis
     Dosage: 30 MILLIGRAM, BID
     Route: 048
  2. BUPROPION HYDROCHLORIDE [Concomitant]
     Active Substance: BUPROPION HYDROCHLORIDE
  3. CIALIS [Concomitant]
     Active Substance: TADALAFIL
  4. GABAPENTIN [Concomitant]
     Active Substance: GABAPENTIN
  5. ACETAMINOPHEN\HYDROCODONE [Concomitant]
     Active Substance: ACETAMINOPHEN\HYDROCODONE
  6. HYDROXYZINE PAMOATE [Concomitant]
     Active Substance: HYDROXYZINE PAMOATE
  7. LOSARTAN POTASSIUM [Concomitant]
     Active Substance: LOSARTAN POTASSIUM
  8. THYROID [Concomitant]
     Active Substance: LEVOTHYROXINE\LIOTHYRONINE
  9. ONDANSETRON [Concomitant]
     Active Substance: ONDANSETRON
  10. SILDENAFIL [Concomitant]
     Active Substance: SILDENAFIL
  11. TADALAFIL [Concomitant]
     Active Substance: TADALAFIL
  12. TERBINAFINE [Concomitant]
     Active Substance: TERBINAFINE
  13. TRAZODONE [Concomitant]
     Active Substance: TRAZODONE HYDROCHLORIDE
  14. ZOLPIDEM [Concomitant]
     Active Substance: ZOLPIDEM TARTRATE
  15. CLONAZEPAM [Concomitant]
     Active Substance: CLONAZEPAM
  16. DESVENLAFAXINE [Concomitant]
     Active Substance: DESVENLAFAXINE
  17. HYDROCHLOROTHIAZIDE [Concomitant]
     Active Substance: HYDROCHLOROTHIAZIDE
  18. HYDROCODONE BITARTRATE AND ACETAMINOPHEN [Concomitant]
     Active Substance: ACETAMINOPHEN\HYDROCODONE BITARTRATE
  19. HYDROXYZINE [Concomitant]
     Active Substance: HYDROXYZINE HYDROCHLORIDE

REACTIONS (2)
  - Psoriasis [Not Recovered/Not Resolved]
  - Therapy interrupted [Unknown]

NARRATIVE: CASE EVENT DATE: 20240422
